FAERS Safety Report 13063886 (Version 1)
Quarter: 2016Q4

REPORT INFORMATION
  Report Type: Spontaneous
  Country: US (occurrence: US)
  Receive Date: 20161227
  Receipt Date: 20161227
  Transmission Date: 20170207
  Serious: No
  Sender: FDA-Public Use
  Company Number: US-PFIZER INC-2016590151

PATIENT
  Age: 85 Year
  Sex: Female

DRUGS (3)
  1. HYDROCORTISONE. [Suspect]
     Active Substance: HYDROCORTISONE
     Dosage: UNK
  2. BISMUTH. [Suspect]
     Active Substance: BISMUTH
     Dosage: UNK
  3. ZINC OXIDE. [Suspect]
     Active Substance: ZINC OXIDE
     Dosage: UNK

REACTIONS (1)
  - Drug hypersensitivity [Unknown]
